FAERS Safety Report 5819128-4 (Version None)
Quarter: 2008Q3

REPORT INFORMATION
  Report Type: 
  Country: None (occurrence: None)
  Receive Date: 20080723
  Receipt Date: 20080707
  Transmission Date: 20090109
  Serious: Yes (Hospitalization)
  Sender: FDA-Public Use
  Company Number: FR-GENENTECH-264372

PATIENT
  Sex: Male

DRUGS (22)
  1. MABTHERA [Suspect]
     Indication: LYMPHOMA
     Dosage: 650 MG, UNK
     Route: 042
     Dates: start: 20080212
  2. BACTRIM DS [Suspect]
     Indication: DRUG USE FOR UNKNOWN INDICATION
     Dosage: 3 DF, Q3W
     Route: 048
     Dates: start: 20080211
  3. OXALIPLATIN [Suspect]
     Indication: DRUG USE FOR UNKNOWN INDICATION
     Dosage: 180 MG, UNK
     Route: 042
     Dates: start: 20080513
  4. GEMZAR [Suspect]
     Indication: DRUG USE FOR UNKNOWN INDICATION
     Dosage: 1800 MG, UNK
     Route: 042
     Dates: start: 20080513
  5. ZOFRAN [Suspect]
     Indication: DRUG USE FOR UNKNOWN INDICATION
     Dosage: 16 MG, UNK
     Route: 042
     Dates: start: 20080211
  6. CISPLATIN [Concomitant]
     Indication: LYMPHOMA
     Dosage: 170 MG, UNK
     Dates: start: 20080213
  7. CYTARABINE [Concomitant]
     Indication: LYMPHOMA
     Dosage: 5.3 G, UNK
     Dates: start: 20080212
  8. DEXAMETHASONE [Concomitant]
     Indication: LYMPHOMA
     Dosage: 40 MG, UNK
     Dates: start: 20080212
  9. IFOSFAMIDE [Concomitant]
     Indication: LYMPHOMA
     Dosage: UNK
     Dates: start: 20080424
  10. MESNA [Concomitant]
     Indication: LYMPHOMA
     Dosage: UNK
     Dates: start: 20080424
  11. ETOPOSIDE [Concomitant]
     Indication: DRUG USE FOR UNKNOWN INDICATION
     Dosage: UNK
     Dates: start: 20080424
  12. ASPEGIC 325 [Concomitant]
     Indication: DRUG USE FOR UNKNOWN INDICATION
  13. DEROXAT [Concomitant]
     Indication: DRUG USE FOR UNKNOWN INDICATION
     Dosage: UNK
     Dates: start: 20080301
  14. EFFEXOR [Concomitant]
     Indication: DRUG USE FOR UNKNOWN INDICATION
     Dosage: UNK
     Dates: start: 20080401
  15. MOPRAL [Concomitant]
     Indication: DRUG USE FOR UNKNOWN INDICATION
  16. POLARAMINE [Concomitant]
     Indication: DRUG USE FOR UNKNOWN INDICATION
  17. PROZAC [Concomitant]
     Indication: DRUG USE FOR UNKNOWN INDICATION
  18. FOLIC ACID [Concomitant]
     Indication: DRUG USE FOR UNKNOWN INDICATION
  19. RAMIPRIL [Concomitant]
     Indication: DRUG USE FOR UNKNOWN INDICATION
     Dosage: UNK
  20. XANAX [Concomitant]
     Indication: DRUG USE FOR UNKNOWN INDICATION
  21. VALACYCLOVIR HCL [Concomitant]
     Indication: DRUG USE FOR UNKNOWN INDICATION
  22. ALLOPURINOL [Concomitant]
     Indication: DRUG USE FOR UNKNOWN INDICATION

REACTIONS (1)
  - PANCREATITIS ACUTE [None]
